FAERS Safety Report 21997836 (Version 1)
Quarter: 2023Q1

REPORT INFORMATION
  Report Type: Spontaneous
  Country: US (occurrence: None)
  Receive Date: 20230216
  Receipt Date: 20230216
  Transmission Date: 20230418
  Serious: No
  Sender: FDA-Public Use
  Company Number: 2023A027477

PATIENT
  Sex: Male
  Weight: 76.2 kg

DRUGS (1)
  1. FARXIGA [Suspect]
     Active Substance: DAPAGLIFLOZIN PROPANEDIOL
     Indication: Renal disorder
     Route: 048
     Dates: start: 20230118, end: 20230128

REACTIONS (4)
  - Blood glucose abnormal [Unknown]
  - Weight increased [Unknown]
  - Rash [Unknown]
  - Back pain [Not Recovered/Not Resolved]
